FAERS Safety Report 4531653-5 (Version None)
Quarter: 2004Q4

REPORT INFORMATION
  Report Type: 
  Country: None (occurrence: None)
  Receive Date: 20041220
  Receipt Date: 20041215
  Transmission Date: 20050328
  Serious: Yes (Hospitalization)
  Sender: FDA-Public Use
  Company Number: 200412807DE

PATIENT
  Age: 90 Year
  Sex: Female
  Weight: 65 kg

DRUGS (7)
  1. CODE UNBROKEN [Suspect]
     Indication: THROMBOSIS PROPHYLAXIS
     Route: 058
     Dates: start: 20041117, end: 20041129
  2. RAMIPRIL [Suspect]
     Indication: HYPERTENSION
     Route: 048
     Dates: start: 20041112, end: 20041129
  3. GLIMEPIRIDE [Suspect]
     Indication: DIABETES MELLITUS
     Route: 048
  4. CANDESARTAN [Suspect]
     Indication: HYPERTENSION
     Route: 048
     Dates: start: 20041117, end: 20041129
  5. ASPIRIN [Suspect]
     Indication: CORONARY ARTERY DISEASE
     Route: 048
  6. MIRTAZAPINE [Suspect]
     Indication: DEPRESSION
     Route: 048
  7. AMLODIPINE [Suspect]
     Indication: HYPERTENSION
     Route: 048

REACTIONS (4)
  - CIRCULATORY COLLAPSE [None]
  - GASTROENTERITIS [None]
  - GASTROINTESTINAL HAEMORRHAGE [None]
  - HAEMOGLOBIN DECREASED [None]
